FAERS Safety Report 5698807-6 (Version None)
Quarter: 2008Q2

REPORT INFORMATION
  Report Type: 
  Country: None (occurrence: None)
  Receive Date: 20080403
  Receipt Date: 20080325
  Transmission Date: 20081010
  Serious: Yes (Other)
  Sender: FDA-Public Use
  Company Number: FABR-1000121

PATIENT
  Age: 37 Year
  Sex: Male
  Weight: 72.9 kg

DRUGS (5)
  1. FABRAZYME [Suspect]
     Indication: FABRY'S DISEASE
     Dosage: 35 MG, QW, INTRAVENOUS, 40 MG, QW, INTRAVENOUS, 75 MG, Q2W, INTRAVENOUS
     Route: 042
     Dates: start: 20051208
  2. FABRAZYME [Suspect]
  3. MICARDIS [Concomitant]
  4. NORVASC [Concomitant]
  5. HYDROCORTISONE [Concomitant]

REACTIONS (23)
  - ADVERSE EVENT [None]
  - ANXIETY [None]
  - BODY TEMPERATURE INCREASED [None]
  - BURNING SENSATION [None]
  - CHEST DISCOMFORT [None]
  - CHEST PAIN [None]
  - CHILLS [None]
  - DISEASE RECURRENCE [None]
  - FEELING ABNORMAL [None]
  - FEELING COLD [None]
  - HEADACHE [None]
  - HEART RATE DECREASED [None]
  - HYPOAESTHESIA ORAL [None]
  - INFUSION RELATED REACTION [None]
  - MUSCULOSKELETAL PAIN [None]
  - MUSCULOSKELETAL STIFFNESS [None]
  - PAIN [None]
  - PAIN IN EXTREMITY [None]
  - PARAESTHESIA [None]
  - PILOERECTION [None]
  - RENAL FAILURE [None]
  - RESTLESSNESS [None]
  - THIRST [None]
